FAERS Safety Report 20393366 (Version 1)
Quarter: 2022Q1

REPORT INFORMATION
  Report Type: Spontaneous
  Country: JP (occurrence: JP)
  Receive Date: 20220128
  Receipt Date: 20220128
  Transmission Date: 20220423
  Serious: Yes (Hospitalization)
  Sender: FDA-Public Use
  Company Number: JP-GILEAD-2021-0561054

PATIENT
  Sex: Female

DRUGS (8)
  1. HARVONI [Suspect]
     Active Substance: LEDIPASVIR\SOFOSBUVIR
     Indication: Hepatitis C
     Dosage: 1 DOSAGE FORM, QD
     Route: 048
     Dates: start: 20211214
  2. HARVONI [Suspect]
     Active Substance: LEDIPASVIR\SOFOSBUVIR
     Dosage: 1 DOSAGE FORM, QD
     Route: 048
  3. SPIRONOLACTONE [Concomitant]
     Active Substance: SPIRONOLACTONE
     Dosage: 1 DOSAGE FORM
  4. ALOSENN [SENNOSIDE A+B] [Concomitant]
     Dosage: 0.5 G
  5. DAYVIGO [Concomitant]
     Active Substance: LEMBOREXANT
     Dosage: 1 DOSAGE FORM
  6. REXULTI [Concomitant]
     Active Substance: BREXPIPRAZOLE
     Dosage: 1 DOSAGE FORM
  7. QUETIAPINE [Concomitant]
     Active Substance: QUETIAPINE
     Dosage: 2 DOSAGE FORM
  8. NITRAZEPAM [Concomitant]
     Active Substance: NITRAZEPAM
     Dosage: 2 DOSAGE FORM

REACTIONS (3)
  - Oedema [Recovered/Resolved]
  - Product dispensing error [Unknown]
  - Product use complaint [Unknown]

NARRATIVE: CASE EVENT DATE: 20211214
